FAERS Safety Report 15060067 (Version 1)
Quarter: 2018Q2

REPORT INFORMATION
  Report Type: Spontaneous
  Country: IN (occurrence: IN)
  Receive Date: 20180605
  Receipt Date: 20180605
  Transmission Date: 20180711
  Serious: Yes (Other)
  Sender: FDA-Public Use
  Company Number: None

PATIENT
  Age: 39 Year
  Sex: Female
  Weight: 62 kg

DRUGS (2)
  1. O2 (OFLOXACIN\ORNIDAZOLE) [Suspect]
     Active Substance: OFLOXACIN\ORNIDAZOLE
     Indication: ABDOMINAL DISCOMFORT
     Dosage: ?          QUANTITY:1 DF DOSAGE FORM;?
     Route: 048
     Dates: start: 20180309, end: 20180309
  2. OFLOXIN [Concomitant]

REACTIONS (2)
  - Erythema [None]
  - Pruritus [None]

NARRATIVE: CASE EVENT DATE: 20180309
